FAERS Safety Report 19933395 (Version 1)
Quarter: 2021Q4

REPORT INFORMATION
  Report Type: Spontaneous
  Country: ES (occurrence: ES)
  Receive Date: 20211008
  Receipt Date: 20211008
  Transmission Date: 20220303
  Serious: Yes (Death, Hospitalization)
  Sender: FDA-Public Use
  Company Number: None

PATIENT
  Age: 71 Year
  Sex: Male

DRUGS (5)
  1. NEXAVAR [Suspect]
     Active Substance: SORAFENIB
     Indication: Poorly differentiated thyroid carcinoma
     Dosage: 600 MG, QD
     Route: 048
     Dates: start: 20201228, end: 20210104
  2. DEXKETOPROFENO KERN PHARMA [Concomitant]
     Indication: Pain
     Dosage: 25 MG, Q8HR
     Route: 048
  3. FENTANYL TRANSDERMAL SYSTEM [Concomitant]
     Active Substance: FENTANYL
     Dosage: 12 ?G, QD
     Route: 062
  4. LORAZEPAM KERN PHARMA [Concomitant]
     Dosage: 1 MG, QD
     Route: 048
  5. LEVOTIROXINA SODICA TEVA [Concomitant]
     Indication: Hypothyroidism
     Dosage: 175 ?G, QD
     Route: 048

REACTIONS (3)
  - Completed suicide [Fatal]
  - Erythema multiforme [Recovered/Resolved]
  - Stevens-Johnson syndrome [Recovered/Resolved]

NARRATIVE: CASE EVENT DATE: 20210101
